FAERS Safety Report 8806874 (Version 1)
Quarter: 2012Q4

REPORT INFORMATION
  Report Type: 
  Country: US (occurrence: US)
  Receive Date: 20120925
  Receipt Date: 20120925
  Transmission Date: 20130627
  Serious: No
  Sender: FDA-Public Use
  Company Number: US-PFIZER INC-2012234693

PATIENT
  Age: 72 Year
  Sex: Male
  Weight: 68.03 kg

DRUGS (2)
  1. VIAGRA [Suspect]
     Indication: ERECTILE DYSFUNCTION
     Dosage: cutting 50 mg tablet in half, UNK
     Route: 048
  2. VIAGRA [Suspect]
     Dosage: 50 mg, Once
     Route: 048
     Dates: start: 20120920

REACTIONS (2)
  - Expired drug administered [Unknown]
  - Drug ineffective [Unknown]
